FAERS Safety Report 19769480 (Version 1)
Quarter: 2021Q3

REPORT INFORMATION
  Report Type: Spontaneous
  Country: US (occurrence: US)
  Receive Date: 20210831
  Receipt Date: 20210831
  Transmission Date: 20211014
  Serious: Yes (Hospitalization)
  Sender: FDA-Public Use
  Company Number: US-MYLANLABS-2021M1057395

PATIENT
  Age: 66 Year
  Sex: Male

DRUGS (1)
  1. HEPARIN [Suspect]
     Active Substance: HEPARIN SODIUM
     Indication: ACUTE CORONARY SYNDROME

REACTIONS (8)
  - Venous thrombosis [Recovered/Resolved]
  - Embolic stroke [Recovered/Resolved]
  - Heparin-induced thrombocytopenia [Recovered/Resolved]
  - Subclavian vein thrombosis [Recovered/Resolved]
  - Renal infarct [Recovered/Resolved]
  - Deep vein thrombosis [Recovered/Resolved]
  - Splenic infarction [Recovered/Resolved]
  - Pulmonary embolism [Recovered/Resolved]
